FAERS Safety Report 6502190-3 (Version None)
Quarter: 2009Q4

REPORT INFORMATION
  Report Type: 
  Country: None (occurrence: None)
  Receive Date: 20091216
  Receipt Date: 20090925
  Transmission Date: 20100525
  Serious: No
  Sender: FDA-Public Use
  Company Number: US-ABBOTT-09P-163-0599823-00

PATIENT
  Sex: Male
  Weight: 108.96 kg

DRUGS (15)
  1. TRILIPIX [Suspect]
     Indication: HYPERLIPIDAEMIA
     Dates: start: 20090601
  2. ZOCOR [Concomitant]
     Indication: DRUG USE FOR UNKNOWN INDICATION
  3. DIGOXIN [Concomitant]
     Indication: DRUG USE FOR UNKNOWN INDICATION
  4. IRON [Concomitant]
     Indication: DRUG USE FOR UNKNOWN INDICATION
  5. INSULIN N 70/30 [Concomitant]
     Indication: DRUG USE FOR UNKNOWN INDICATION
     Dosage: 55 U IN AM   30 U MID-AFTERNOON   50 U IN PM
  6. IBUMAX [Concomitant]
     Indication: DRUG USE FOR UNKNOWN INDICATION
  7. LOPRESSOR SR [Concomitant]
     Indication: DRUG USE FOR UNKNOWN INDICATION
  8. INSPRA [Concomitant]
     Indication: DRUG USE FOR UNKNOWN INDICATION
  9. CACITRIOL [Concomitant]
     Indication: DRUG USE FOR UNKNOWN INDICATION
  10. ALLOPURINOL [Concomitant]
     Indication: DRUG USE FOR UNKNOWN INDICATION
  11. PRILOSEC [Concomitant]
     Indication: DRUG USE FOR UNKNOWN INDICATION
  12. DILT-CD [Concomitant]
     Indication: DRUG USE FOR UNKNOWN INDICATION
  13. COUMADIN [Concomitant]
     Indication: DRUG USE FOR UNKNOWN INDICATION
     Dosage: 2.5 MG 4 XS/WEEK   5 MG 3 XS/WEEK
     Dates: start: 20081201
  14. MULTI-VITAMIN [Concomitant]
     Indication: DRUG USE FOR UNKNOWN INDICATION
  15. TRAZODONE HCL [Concomitant]
     Indication: DRUG USE FOR UNKNOWN INDICATION

REACTIONS (3)
  - CREATININE RENAL CLEARANCE DECREASED [None]
  - PROTEIN URINE PRESENT [None]
  - RENAL IMPAIRMENT [None]
